FAERS Safety Report 12039508 (Version 1)
Quarter: 2016Q1

REPORT INFORMATION
  Report Type: Spontaneous
  Country: US (occurrence: None)
  Receive Date: 20160205
  Receipt Date: 20160205
  Transmission Date: 20160526
  Serious: Yes (Hospitalization)
  Sender: FDA-Public Use
  Company Number: None

PATIENT
  Age: 45 Year
  Sex: Female
  Weight: 125 kg

DRUGS (27)
  1. FLUTICASONE [Concomitant]
     Active Substance: FLUTICASONE\FLUTICASONE PROPIONATE
  2. PROCHLORPERAZINE. [Concomitant]
     Active Substance: PROCHLORPERAZINE
  3. HUMULIN R U-500 [Concomitant]
     Active Substance: INSULIN HUMAN
  4. METFORMIN [Concomitant]
     Active Substance: METFORMIN HYDROCHLORIDE
  5. ACETAMINOPHEN. [Concomitant]
     Active Substance: ACETAMINOPHEN
  6. MOMETASONE [Concomitant]
     Active Substance: MOMETASONE
  7. RIBOFLAVIN [Concomitant]
     Active Substance: RIBOFLAVIN
  8. TRAZODONE [Concomitant]
     Active Substance: TRAZODONE HYDROCHLORIDE
  9. GUAIFENESIN. [Concomitant]
     Active Substance: GUAIFENESIN
  10. LISINOPRIL. [Concomitant]
     Active Substance: LISINOPRIL
  11. ALBUTEROL. [Concomitant]
     Active Substance: ALBUTEROL
  12. METOPROLOL. [Concomitant]
     Active Substance: METOPROLOL
  13. MULTIVITAMIN [Concomitant]
     Active Substance: VITAMINS
  14. ONDANSETRON [Concomitant]
     Active Substance: ONDANSETRON
  15. ERGOCALCIFEROL. [Concomitant]
     Active Substance: ERGOCALCIFEROL
  16. AMLODIPINE [Concomitant]
     Active Substance: AMLODIPINE BESYLATE
  17. VICKS VAPORUB [Concomitant]
     Active Substance: CAMPHOR (SYNTHETIC)\EUCALYPTUS OIL\MENTHOL
  18. ATORVASTATIN [Concomitant]
     Active Substance: ATORVASTATIN
  19. CHLORTHALIDONE. [Concomitant]
     Active Substance: CHLORTHALIDONE
  20. HYDROCORTISONE. [Concomitant]
     Active Substance: HYDROCORTISONE
  21. LOPERAMIDE [Concomitant]
     Active Substance: LOPERAMIDE
  22. SELENIUM SULFIDE. [Concomitant]
     Active Substance: SELENIUM SULFIDE
  23. SPIRONOLACTON [Concomitant]
     Active Substance: SPIRONOLACTONE
  24. QSYMIA [Suspect]
     Active Substance: PHENTERMINE HYDROCHLORIDE\TOPIRAMATE
     Indication: OBESITY
     Route: 048
     Dates: start: 20160120, end: 20160201
  25. DIPHENHYDRAMINE. [Concomitant]
     Active Substance: DIPHENHYDRAMINE
  26. FEXOFANADINE [Concomitant]
  27. TRAMADOL. [Concomitant]
     Active Substance: TRAMADOL

REACTIONS (3)
  - Hypotension [None]
  - Acute kidney injury [None]
  - Headache [None]

NARRATIVE: CASE EVENT DATE: 20160201
